FAERS Safety Report 21127465 (Version 2)
Quarter: 2022Q4

REPORT INFORMATION
  Report Type: Spontaneous
  Country: US (occurrence: US)
  Receive Date: 20220725
  Receipt Date: 20221208
  Transmission Date: 20230113
  Serious: Yes (Hospitalization, Other)
  Sender: FDA-Public Use
  Company Number: US-GILEAD-2022-0590609

PATIENT
  Age: 69 Year
  Sex: Female
  Weight: 50.8 kg

DRUGS (6)
  1. YESCARTA [Suspect]
     Active Substance: AXICABTAGENE CILOLEUCEL
     Indication: Diffuse large B-cell lymphoma
     Dosage: 2X10^6 PER KG
     Route: 042
     Dates: start: 20220718, end: 20220718
  2. TOCILIZUMAB [Concomitant]
     Active Substance: TOCILIZUMAB
     Indication: Cytokine release syndrome
     Dosage: 8 MG/KG
     Route: 042
     Dates: start: 20220721, end: 20220721
  3. DEXAMETHASONE [Concomitant]
     Active Substance: DEXAMETHASONE
     Indication: Cytokine release syndrome
     Dosage: UNK
     Route: 042
     Dates: start: 20220721, end: 20220727
  4. ACYCLOVIR [Concomitant]
     Active Substance: ACYCLOVIR
     Indication: Prophylaxis
  5. FLUCONAZOLE [Concomitant]
     Active Substance: FLUCONAZOLE
     Indication: Prophylaxis
  6. ALLOPURINOL [Concomitant]
     Active Substance: ALLOPURINOL
     Indication: Prophylaxis

REACTIONS (12)
  - Anaphylactic reaction [Unknown]
  - Pulseless electrical activity [Unknown]
  - Cytokine release syndrome [Unknown]
  - Air embolism [Unknown]
  - Unresponsive to stimuli [Recovered/Resolved]
  - Bradycardia [Unknown]
  - Deep vein thrombosis [Unknown]
  - Supraventricular tachycardia [Unknown]
  - Tachycardia [Unknown]
  - Hypertension [Unknown]
  - Dyspnoea [Unknown]
  - Pleural effusion [Unknown]

NARRATIVE: CASE EVENT DATE: 20220718
